FAERS Safety Report 18606203 (Version 1)
Quarter: 2020Q4

REPORT INFORMATION
  Report Type: Spontaneous
  Country: CZ (occurrence: CZ)
  Receive Date: 20201211
  Receipt Date: 20201211
  Transmission Date: 20210114
  Serious: Yes (Other)
  Sender: FDA-Public Use
  Company Number: CZ-MYLANLABS-2020M1100331

PATIENT
  Age: 64 Year
  Sex: Male

DRUGS (8)
  1. LEUCOVORINE [Suspect]
     Active Substance: LEUCOVORIN
     Indication: ADENOCARCINOMA OF COLON
     Dosage: UNK
     Dates: start: 2014, end: 2015
  2. BEVACIZUMAB. [Suspect]
     Active Substance: BEVACIZUMAB
     Indication: ADENOCARCINOMA OF COLON
     Dosage: UNK
     Dates: start: 2014, end: 2015
  3. CETUXIMAB. [Suspect]
     Active Substance: CETUXIMAB
     Indication: ADENOCARCINOMA OF COLON
     Dosage: UNK
     Dates: start: 2015, end: 2016
  4. OXALIPLATIN. [Suspect]
     Active Substance: OXALIPLATIN
     Indication: ADENOCARCINOMA OF COLON
     Dosage: UNK
     Dates: start: 2014, end: 2015
  5. 5 FLUOROURACIL                     /00098801/ [Suspect]
     Active Substance: FLUOROURACIL
     Indication: ADENOCARCINOMA OF COLON
     Dosage: UNK
     Dates: start: 2014, end: 2015
  6. 5 FLUOROURACIL                     /00098801/ [Suspect]
     Active Substance: FLUOROURACIL
     Dosage: UNK
     Dates: start: 2015, end: 2016
  7. IRINOTECAN [Suspect]
     Active Substance: IRINOTECAN
     Indication: ADENOCARCINOMA OF COLON
     Dosage: UNK
     Dates: start: 2015, end: 2016
  8. LEUCOVORINE [Suspect]
     Active Substance: LEUCOVORIN
     Dosage: UNK
     Dates: start: 2015, end: 2016

REACTIONS (8)
  - Skin toxicity [Unknown]
  - Weight decreased [Unknown]
  - Alopecia [Unknown]
  - Diarrhoea [Unknown]
  - Fatigue [Unknown]
  - Disease progression [Unknown]
  - Neurotoxicity [Unknown]
  - Hypersensitivity [Unknown]
